FAERS Safety Report 14520176 (Version 1)
Quarter: 2018Q1

REPORT INFORMATION
  Report Type: Spontaneous
  Country: IN (occurrence: IN)
  Receive Date: 20180212
  Receipt Date: 20180212
  Transmission Date: 20180509
  Serious: Yes (Other)
  Sender: FDA-Public Use
  Company Number: IN-PFIZER INC-2018056119

PATIENT
  Age: 54 Year
  Sex: Female
  Weight: 70.9 kg

DRUGS (17)
  1. DIGENE /01361001/ [Concomitant]
     Dosage: 10 ML, 2X/DAY
  2. PAN [Concomitant]
     Dosage: 40 MG, 1X/DAY
  3. ATIVAN [Concomitant]
     Active Substance: LORAZEPAM
     Dosage: 1 MG, UNK (BED TIME)
  4. METOSARTAN [Concomitant]
     Dosage: 500 MG, 1X/DAY
  5. SHELCAL [Concomitant]
     Dosage: 500 MG, 2X/DAY
  6. LEVOLIN /01419301/ [Concomitant]
     Indication: WHEEZING
     Dosage: UNK UNK, AS NEEDED
  7. ALLEGRA [Concomitant]
     Active Substance: FEXOFENADINE HYDROCHLORIDE
     Dosage: 180 MG, 1X/DAY (X 5 DAY)
  8. PROTINEX [Concomitant]
     Dosage: UNK 3 TSF, 3X/DAY
  9. PALBACE [Suspect]
     Active Substance: PALBOCICLIB
     Indication: BREAST CANCER METASTATIC
     Dosage: 100 MG, 1X/DAY (FOR 21 DAYS, GAP OF 7 DAYS)
     Route: 048
  10. PERINORM [Concomitant]
     Dosage: 1 DF, UNK (BEFORE FOOD)
  11. DOXYCYCLINE. [Concomitant]
     Active Substance: DOXYCYCLINE
     Dosage: 100 MG, 2X/DAY (ONE DAY 1 FOLLOWED BY 100 MG ONCE DAILY FOR 14 DAYS)
  12. FULVESTRANT. [Concomitant]
     Active Substance: FULVESTRANT
     Dosage: 500 MG, UNK
     Route: 030
     Dates: start: 20180115
  13. TELMA [Concomitant]
     Active Substance: TELMISARTAN
     Dosage: 80 MG, UNK
  14. THYRONORM [Concomitant]
     Active Substance: LEVOTHYROXINE
     Dosage: UNK 75 MICG, 1X/DAY
  15. DOMSTAL /00498201/ [Concomitant]
     Dosage: 10 MG, 3X/DAY
  16. LEVOLIN /01419301/ [Concomitant]
     Indication: DYSPNOEA
  17. ZOLEDRONIC ACID. [Concomitant]
     Active Substance: ZOLEDRONIC ACID
     Dosage: 4 MG, UNK

REACTIONS (9)
  - Alanine aminotransferase increased [Unknown]
  - Aspartate aminotransferase increased [Unknown]
  - Odynophagia [Unknown]
  - Blood urea increased [Unknown]
  - Blood alkaline phosphatase increased [Unknown]
  - Asthenia [Unknown]
  - Gamma-glutamyltransferase increased [Unknown]
  - Cytopenia [Unknown]
  - Blood potassium decreased [Unknown]
